FAERS Safety Report 23798700 (Version 1)
Quarter: 2024Q2

REPORT INFORMATION
  Report Type: Spontaneous
  Country: US (occurrence: None)
  Receive Date: 20240430
  Receipt Date: 20240430
  Transmission Date: 20240716
  Serious: No
  Sender: FDA-Public Use
  Company Number: 2024A100880

PATIENT
  Age: 853 Month
  Sex: Female
  Weight: 57.6 kg

DRUGS (9)
  1. FASENRA [Suspect]
     Active Substance: BENRALIZUMAB
     Indication: Asthma
     Route: 058
     Dates: start: 20230426
  2. TRELEGY ELLIPTA [Concomitant]
     Active Substance: FLUTICASONE FUROATE\UMECLIDINIUM BROMIDE\VILANTEROL TRIFENATATE
  3. PREDNISONE [Concomitant]
     Active Substance: PREDNISONE
  4. LORAZEPAM [Concomitant]
     Active Substance: LORAZEPAM
  5. MONTELUKAST [Concomitant]
     Active Substance: MONTELUKAST SODIUM
  6. XIGDUO XR [Concomitant]
     Active Substance: DAPAGLIFLOZIN PROPANEDIOL\METFORMIN HYDROCHLORIDE
  7. IRBERSARTAN [Concomitant]
  8. DILTIAZEM [Concomitant]
     Active Substance: DILTIAZEM
  9. AMITRIPTYLINE [Concomitant]
     Active Substance: AMITRIPTYLINE

REACTIONS (2)
  - Asthma [Recovered/Resolved]
  - Product dose omission issue [Recovered/Resolved]

NARRATIVE: CASE EVENT DATE: 20240301
